FAERS Safety Report 12802136 (Version 1)
Quarter: 2016Q4

REPORT INFORMATION
  Report Type: Spontaneous
  Country: US (occurrence: US)
  Receive Date: 20161003
  Receipt Date: 20161003
  Transmission Date: 20170207
  Serious: No
  Sender: FDA-Public Use
  Company Number: US-JAZZ-2016-US-012225

PATIENT
  Sex: Female

DRUGS (21)
  1. NUVIGIL [Concomitant]
     Active Substance: ARMODAFINIL
  2. METHOCARBAMOL. [Concomitant]
     Active Substance: METHOCARBAMOL
  3. DEPO-PROVERA [Concomitant]
     Active Substance: MEDROXYPROGESTERONE ACETATE
  4. MULTIVITAMINS [Concomitant]
     Active Substance: VITAMINS
  5. HYDROCODONE/ACETAMINOPHEN [Concomitant]
     Active Substance: ACETAMINOPHEN\HYDROCODONE
  6. MODAFINIL. [Concomitant]
     Active Substance: MODAFINIL
  7. GABAPENTIN. [Concomitant]
     Active Substance: GABAPENTIN
  8. DICLOFENAC POTASSIUM. [Concomitant]
     Active Substance: DICLOFENAC POTASSIUM
  9. CHANTIX [Concomitant]
     Active Substance: VARENICLINE TARTRATE
  10. TRAMADOL HCL [Concomitant]
     Active Substance: TRAMADOL HYDROCHLORIDE
  11. SUMATRIPTAN SUCCINATE. [Concomitant]
     Active Substance: SUMATRIPTAN SUCCINATE
  12. LYRICA [Concomitant]
     Active Substance: PREGABALIN
  13. XYREM [Suspect]
     Active Substance: SODIUM OXYBATE
     Dosage: 4.5 G, BID
     Route: 048
     Dates: start: 201506
  14. RITALIN [Concomitant]
     Active Substance: METHYLPHENIDATE HYDROCHLORIDE
  15. IBUPROFEN. [Concomitant]
     Active Substance: IBUPROFEN
  16. XYREM [Suspect]
     Active Substance: SODIUM OXYBATE
     Indication: NARCOLEPSY
     Dosage: 2.25 G, BID
     Route: 048
     Dates: start: 201505, end: 201505
  17. VYVANSE [Concomitant]
     Active Substance: LISDEXAMFETAMINE DIMESYLATE
  18. PERCOCET [Concomitant]
     Active Substance: ACETAMINOPHEN\OXYCODONE HYDROCHLORIDE
  19. XYREM [Suspect]
     Active Substance: SODIUM OXYBATE
     Dosage: DOSE ADJUSTMENTS
     Route: 048
     Dates: start: 201505, end: 201506
  20. VITAMIN D [Concomitant]
     Active Substance: CHOLECALCIFEROL
  21. EFFEXOR XR [Concomitant]
     Active Substance: VENLAFAXINE HYDROCHLORIDE

REACTIONS (1)
  - Unevaluable event [Unknown]
